FAERS Safety Report 16281665 (Version 6)
Quarter: 2019Q2

REPORT INFORMATION
  Report Type: Spontaneous
  Country: US (occurrence: US)
  Receive Date: 20190507
  Receipt Date: 20190620
  Transmission Date: 20190711
  Serious: No
  Sender: FDA-Public Use
  Company Number: US-PFIZER INC-2019190654

PATIENT
  Sex: Male

DRUGS (6)
  1. ROCURONIUM BROMIDE. [Suspect]
     Active Substance: ROCURONIUM BROMIDE
     Indication: PARALYSIS
     Dosage: 0.8 MG/KG, SINGLE
  2. ROCURONIUM BROMIDE. [Suspect]
     Active Substance: ROCURONIUM BROMIDE
     Dosage: UNK [1 MG/KG (60 MG ON 67 KG PT) FOR INDUCTION]
     Route: 042
     Dates: start: 20190507, end: 20190507
  3. FENTANYL. [Concomitant]
     Active Substance: FENTANYL
     Indication: GENERAL ANAESTHESIA
     Dosage: 75 UG, UNK
     Dates: start: 20190507, end: 20190507
  4. MIDAZOLAM [Concomitant]
     Active Substance: MIDAZOLAM HYDROCHLORIDE
     Indication: GENERAL ANAESTHESIA
     Dosage: 4 MG, UNK
     Dates: start: 20190507, end: 20190507
  5. PROPOFOL. [Concomitant]
     Active Substance: PROPOFOL
     Indication: GENERAL ANAESTHESIA
     Dosage: 200 MG, UNK
     Dates: start: 20190507, end: 20190507
  6. ROCURONIUM BROMIDE. [Suspect]
     Active Substance: ROCURONIUM BROMIDE
     Indication: GENERAL ANAESTHESIA
     Dosage: 0.8 MG/KG, SINGLE

REACTIONS (1)
  - Therapeutic product effect decreased [Unknown]
